FAERS Safety Report 19950923 (Version 1)
Quarter: 2021Q4

REPORT INFORMATION
  Report Type: Spontaneous
  Country: US (occurrence: US)
  Receive Date: 20211014
  Receipt Date: 20211014
  Transmission Date: 20220303
  Serious: Yes (Death, Hospitalization)
  Sender: FDA-Public Use
  Company Number: US-JNJFOC-20211000673

PATIENT
  Age: 28 Year
  Sex: Female
  Weight: 120 kg

DRUGS (6)
  1. TYLENOL [Suspect]
     Active Substance: ACETAMINOPHEN
     Indication: Suicide attempt
     Dosage: UNKNOWN DOSE
     Route: 048
     Dates: start: 20010503, end: 20010503
  2. IRON [Suspect]
     Active Substance: IRON
     Indication: Product used for unknown indication
     Route: 065
     Dates: end: 20010503
  3. FIORICET [Suspect]
     Active Substance: ACETAMINOPHEN\BUTALBITAL\CAFFEINE
     Indication: Product used for unknown indication
     Route: 048
     Dates: end: 20010503
  4. NARATRIPTAN [Concomitant]
     Active Substance: NARATRIPTAN HYDROCHLORIDE
     Indication: Product used for unknown indication
     Route: 065
     Dates: end: 20010503
  5. PAXIL [Concomitant]
     Active Substance: PAROXETINE HYDROCHLORIDE
     Indication: Product used for unknown indication
     Route: 065
     Dates: end: 20010503
  6. BENADRYL [Concomitant]
     Active Substance: DIPHENHYDRAMINE HYDROCHLORIDE
     Indication: Product used for unknown indication
     Route: 065
     Dates: end: 20010503

REACTIONS (11)
  - Acute hepatic failure [Fatal]
  - Acute kidney injury [Fatal]
  - Completed suicide [Fatal]
  - Brain oedema [Fatal]
  - Staphylococcal infection [Fatal]
  - Enterococcal infection [Fatal]
  - Escherichia infection [Fatal]
  - Klebsiella infection [Fatal]
  - Beta haemolytic streptococcal infection [Fatal]
  - Lactobacillus infection [Fatal]
  - Intentional overdose [Fatal]
